FAERS Safety Report 10212999 (Version 1)
Quarter: 2014Q2

REPORT INFORMATION
  Report Type: Spontaneous
  Country: US (occurrence: US)
  Receive Date: 20140602
  Receipt Date: 20140602
  Transmission Date: 20141212
  Serious: No
  Sender: FDA-Public Use
  Company Number: US-B.I. PHARMACEUTICALS,INC./RIDGEFIELD-2014-BI-22904BP

PATIENT
  Sex: Female
  Weight: 118 kg

DRUGS (33)
  1. COMBIVENT [Suspect]
     Indication: ASTHMA
     Dosage: STRENGTH: 18 MCG / 103 MCG
     Route: 055
     Dates: start: 2012
  2. DULERA [Concomitant]
     Indication: ASTHMA
     Route: 055
     Dates: start: 20120317
  3. METROGEL [Concomitant]
     Indication: ROSACEA
     Route: 061
  4. WELLBUTRIN SR [Concomitant]
     Indication: DEPRESSION
     Dosage: 300 MG
     Route: 048
  5. REGLAN [Concomitant]
     Indication: IMPAIRED GASTRIC EMPTYING
     Dosage: 15 MG
     Route: 048
  6. POTASSIUM [Concomitant]
     Indication: BLOOD POTASSIUM DECREASED
     Dosage: 10 MEQ
     Route: 048
  7. LAC LOTION [Concomitant]
     Indication: DRY SKIN
     Route: 061
  8. BACLOFEN [Concomitant]
     Indication: MYELITIS TRANSVERSE
     Dosage: 120 MG
     Route: 048
  9. PHENERGAN [Concomitant]
     Indication: IMPAIRED GASTRIC EMPTYING
     Route: 048
  10. CLARITIN [Concomitant]
     Indication: ASTHMA
     Dosage: 10 MG
     Route: 048
  11. SUDAFED [Concomitant]
     Indication: ASTHMA
     Dosage: 240 MG
     Route: 048
  12. ASPIRIN [Concomitant]
     Indication: MITRAL VALVE PROLAPSE
     Dosage: 81 MG
     Route: 048
  13. COREG [Concomitant]
     Indication: HYPERTENSION
     Dosage: 12.5 MG
     Route: 048
  14. MAG DR 64 [Concomitant]
     Indication: BLOOD MAGNESIUM DECREASED
     Route: 048
  15. XANAX [Concomitant]
     Indication: ANXIETY
     Route: 048
  16. LUMIGAN 0.01% [Concomitant]
     Indication: INTRAOCULAR PRESSURE INCREASED
     Dosage: FORMULATION: EYE DROPS
     Route: 050
  17. LASTACAFT [Concomitant]
     Indication: SEASONAL ALLERGY
     Dosage: FORMULATION: EYE DROPS.
     Route: 050
  18. LAMICTAL [Concomitant]
     Indication: AFFECTIVE DISORDER
     Dosage: 100 MG
     Route: 048
  19. GELNIQUE 10% GEL [Concomitant]
     Indication: NEUROGENIC BLADDER
     Route: 061
  20. DITROPAN XL [Concomitant]
     Indication: NEUROGENIC BLADDER
     Dosage: 10 MG
     Route: 048
  21. MULTIVITAMIN [Concomitant]
     Route: 048
  22. PHENAZOPYRIDINE HCL [Concomitant]
     Indication: BLADDER SPASM
     Route: 048
  23. AZELASTINE NASAL SPRAY [Concomitant]
     Indication: SEASONAL ALLERGY
     Dosage: FORMULATION: NASAL SPRAY
     Route: 045
  24. VICTIV [Concomitant]
     Indication: VITAMIN D DEFICIENCY
     Route: 048
  25. VITAMIN B 12 [Concomitant]
     Dosage: FORMULATION: INTRAMUSCULAR
     Route: 030
  26. NAPROXEN DR [Concomitant]
     Indication: FIBROMYALGIA
     Dosage: 1000 MG
     Route: 048
  27. TYLENOL [Concomitant]
     Indication: FIBROMYALGIA
     Dosage: 1000 MG
     Route: 048
  28. IBUPROFEN [Concomitant]
     Indication: FIBROMYALGIA
     Dosage: 2400 MG
     Route: 048
  29. MIRALAX [Concomitant]
     Indication: CONSTIPATION
     Route: 048
  30. BENADRYL [Concomitant]
     Dosage: 100 MG
     Route: 048
  31. ACEPHEX [Concomitant]
     Indication: GASTROOESOPHAGEAL REFLUX DISEASE
     Dosage: 40 MG
     Route: 048
  32. EPI PEN [Concomitant]
     Indication: HYPERSENSITIVITY
     Route: 065
  33. SMITHECONE [Concomitant]
     Indication: GASTROOESOPHAGEAL REFLUX DISEASE
     Dosage: 500 MG
     Route: 048

REACTIONS (4)
  - Skin exfoliation [Recovered/Resolved]
  - Blood pressure increased [Not Recovered/Not Resolved]
  - Drug ineffective [Not Recovered/Not Resolved]
  - Off label use [Not Recovered/Not Resolved]
